FAERS Safety Report 6539721-3 (Version None)
Quarter: 2010Q1

REPORT INFORMATION
  Report Type: 
  Country: None (occurrence: None)
  Receive Date: 20100115
  Receipt Date: 20100107
  Transmission Date: 20100710
  Serious: Yes (Hospitalization, Other)
  Sender: FDA-Public Use
  Company Number: US-AMGEN-QUU360584

PATIENT
  Sex: Female

DRUGS (10)
  1. ENBREL [Suspect]
     Indication: RHEUMATOID ARTHRITIS
     Route: 058
     Dates: start: 20070616
  2. PLAQUENIL [Concomitant]
     Route: 048
  3. VITAMIN D [Concomitant]
     Route: 048
  4. CALCIUM [Concomitant]
     Route: 048
  5. METFORMIN HYDROCHLORIDE [Concomitant]
     Route: 048
  6. LISINOPRIL [Concomitant]
  7. XALATAN [Concomitant]
  8. PRILOSEC [Concomitant]
     Route: 048
  9. ESTROGENS [Concomitant]
  10. PROGESTERONE [Concomitant]

REACTIONS (23)
  - ANXIETY [None]
  - ARTHRALGIA [None]
  - ARTHRODESIS [None]
  - CHRYSIASIS [None]
  - DEPRESSION [None]
  - DIARRHOEA [None]
  - EYE PRURITUS [None]
  - FINGER DEFORMITY [None]
  - GASTROINTESTINAL DISORDER [None]
  - HEADACHE [None]
  - INCREASED TENDENCY TO BRUISE [None]
  - INSOMNIA [None]
  - JOINT DISLOCATION [None]
  - JOINT RANGE OF MOTION DECREASED [None]
  - KNEE ARTHROPLASTY [None]
  - MUSCLE SPASMS [None]
  - MUSCULOSKELETAL STIFFNESS [None]
  - OSTEOARTHRITIS [None]
  - RESPIRATORY TRACT CONGESTION [None]
  - RHEUMATOID ARTHRITIS [None]
  - ROAD TRAFFIC ACCIDENT [None]
  - SYNOVITIS [None]
  - VOMITING [None]
